FAERS Safety Report 16265062 (Version 3)
Quarter: 2019Q3

REPORT INFORMATION
  Report Type: Spontaneous
  Country: US (occurrence: US)
  Receive Date: 20190502
  Receipt Date: 20190926
  Transmission Date: 20191004
  Serious: Yes (Other)
  Sender: FDA-Public Use
  Company Number: US-009507513-1904USA012180

PATIENT
  Sex: Female

DRUGS (1)
  1. FOSAMAX [Suspect]
     Active Substance: ALENDRONATE SODIUM
     Dosage: OVER 5 YEARS
     Route: 048

REACTIONS (3)
  - Loose tooth [Recovered/Resolved]
  - Dental caries [Recovered/Resolved]
  - Tooth disorder [Unknown]
